FAERS Safety Report 4859835-3 (Version None)
Quarter: 2005Q4

REPORT INFORMATION
  Report Type: 
  Country: None (occurrence: None)
  Receive Date: 20051219
  Receipt Date: 20051212
  Transmission Date: 20060501
  Serious: Yes (Hospitalization)
  Sender: FDA-Public Use
  Company Number: 05.117-MUPI-FRA

PATIENT
  Age: 49 Year
  Sex: Female

DRUGS (3)
  1. MUPIDERM [Suspect]
     Route: 061
     Dates: start: 20051005, end: 20051007
  2. HEXOMEDINE [Suspect]
     Route: 061
     Dates: start: 20051005, end: 20051007
  3. PYOSTACINE [Suspect]
     Dosage: 2G PER DAY
     Route: 048
     Dates: start: 20051005, end: 20051007

REACTIONS (4)
  - ANGIONEUROTIC OEDEMA [None]
  - EYELID OEDEMA [None]
  - FACE OEDEMA [None]
  - ODYNOPHAGIA [None]
